FAERS Safety Report 8802538 (Version 1)
Quarter: 2012Q4

REPORT INFORMATION
  Report Type: 
  Country: JP (occurrence: JP)
  Receive Date: 20120921
  Receipt Date: 20120921
  Transmission Date: 20130627
  Serious: Yes (Hospitalization, Other)
  Sender: FDA-Public Use
  Company Number: PHHY2012JP071494

PATIENT
  Age: 82 Year
  Sex: Female
  Weight: 32 kg

DRUGS (16)
  1. TEGRETOL [Suspect]
     Indication: HYPOAESTHESIA
     Dosage: 200 mg, TID
     Route: 048
     Dates: end: 20120810
  2. CARVEDILOL [Suspect]
     Indication: ANGINA PECTORIS
     Dosage: 10 mg, QD
     Route: 048
     Dates: end: 20120810
  3. VOLTAREN SR [Suspect]
     Indication: PAIN IN EXTREMITY
     Dosage: 37.5 mg, BID
     Dates: end: 20120810
  4. MICARDIS [Suspect]
     Indication: HYPERTENSION
     Dosage: 80 mg, QD
     Route: 048
     Dates: end: 20120810
  5. ZETIA [Concomitant]
     Indication: DYSLIPIDAEMIA
     Dosage: 10 mg, UNK
     Route: 048
  6. PARIET [Concomitant]
     Indication: GASTRIC ULCER
     Dosage: 10 mg, UNK
     Route: 048
  7. LASIX [Concomitant]
     Indication: HYPERTENSION
     Dosage: 20 mg, UNK
     Route: 048
  8. BUFFERIN [Concomitant]
     Indication: ANGINA PECTORIS
     Dosage: 81 mg, UNK
     Route: 048
  9. LIVALO KOWA [Concomitant]
     Indication: DYSLIPIDAEMIA
     Dosage: 2 mg, UNK
     Route: 048
  10. HALCION [Concomitant]
     Indication: INSOMNIA
     Dosage: 0.25 mg, UNK
     Route: 048
  11. ANPLAG [Concomitant]
     Dosage: 300 mg, UNK
     Route: 048
  12. ALTAT [Concomitant]
     Dosage: 150 mg, UNK
     Route: 048
  13. ADETPHOS [Concomitant]
     Dosage: 2 g, UNK
     Route: 048
  14. RINLAXER [Concomitant]
     Dosage: 500 mg, UNK
     Route: 048
  15. AMLODIPINE [Concomitant]
     Dosage: 10 mg, UNK
     Route: 048
  16. GASLON [Concomitant]
     Dosage: 4 mg, UNK
     Route: 048

REACTIONS (11)
  - Hyperkalaemia [Recovered/Resolved]
  - Feeling abnormal [Unknown]
  - Loss of consciousness [Unknown]
  - Anuria [Recovering/Resolving]
  - Bradycardia [Recovered/Resolved]
  - Hypotension [Unknown]
  - Fall [Unknown]
  - Sinus arrhythmia [Unknown]
  - Haemoglobin decreased [Unknown]
  - Malaise [Unknown]
  - Defaecation urgency [None]
